FAERS Safety Report 20202059 (Version 1)
Quarter: 2021Q4

REPORT INFORMATION
  Report Type: Spontaneous
  Country: SE (occurrence: SE)
  Receive Date: 20211217
  Receipt Date: 20211217
  Transmission Date: 20220303
  Serious: Yes (Congenital Anomaly)
  Sender: FDA-Public Use
  Company Number: SE-ABBVIE-03P-150-0232569-00

PATIENT
  Age: 0 Day
  Sex: Male

DRUGS (1)
  1. VALPROIC ACID [Suspect]
     Active Substance: VALPROIC ACID
     Indication: Maternal exposure timing unspecified
     Route: 064

REACTIONS (4)
  - Meningomyelocele [None]
  - Ventricular septal defect [None]
  - Hypospadias [None]
  - Congenital central nervous system anomaly [None]

NARRATIVE: CASE EVENT DATE: 20030501
